FAERS Safety Report 12839896 (Version 1)
Quarter: 2016Q4

REPORT INFORMATION
  Report Type: Spontaneous
  Country: US (occurrence: US)
  Receive Date: 20161011
  Receipt Date: 20161011
  Transmission Date: 20170207
  Serious: Yes (Other)
  Sender: FDA-Public Use
  Company Number: None

PATIENT
  Age: 47 Year
  Sex: Female
  Weight: 92.25 kg

DRUGS (1)
  1. TRULICITY [Suspect]
     Active Substance: DULAGLUTIDE
     Indication: TYPE 2 DIABETES MELLITUS
     Dosage: OTHER OTHER OTHER
     Dates: start: 20150213

REACTIONS (3)
  - Injection site reaction [None]
  - Irritability [None]
  - Depressed mood [None]

NARRATIVE: CASE EVENT DATE: 20161011
